FAERS Safety Report 5314968-2 (Version None)
Quarter: 2007Q2

REPORT INFORMATION
  Report Type: 
  Country: None (occurrence: None)
  Receive Date: 20070502
  Receipt Date: 20070418
  Transmission Date: 20071010
  Serious: Yes (Other)
  Sender: FDA-Public Use
  Company Number: US-ELI_LILLY_AND_COMPANY-US200704003932

PATIENT
  Age: 58 Year
  Sex: Female

DRUGS (2)
  1. CYMBALTA [Suspect]
     Indication: MULTIPLE SCLEROSIS
     Dosage: 30 MG, 2/D
     Dates: start: 20050101, end: 20070418
  2. AMBIEN [Concomitant]

REACTIONS (2)
  - HEPATIC STEATOSIS [None]
  - HEPATOMEGALY [None]
